FAERS Safety Report 17855935 (Version 2)
Quarter: 2020Q4

REPORT INFORMATION
  Report Type: Spontaneous
  Country: GB (occurrence: GB)
  Receive Date: 20200603
  Receipt Date: 20201005
  Transmission Date: 20210113
  Serious: Yes (Life-Threatening, Hospitalization, Other)
  Sender: FDA-Public Use
  Company Number: GB-MYLANLABS-2020M1053497

PATIENT
  Age: 72 Year
  Sex: Female
  Weight: 32.7 kg

DRUGS (31)
  1. WARFARIN [Suspect]
     Active Substance: WARFARIN
     Indication: ATRIAL FIBRILLATION
     Dosage: VARIABLE - NEWLY STARTED (LOW WARFARIN REQUIREMENT). SINGLE DOSE. DOSE ADJUSTED ACCORDING TO INR.
     Route: 048
     Dates: start: 20200401
  2. BISOPROLOL [Concomitant]
     Active Substance: BISOPROLOL
     Indication: ATRIAL FIBRILLATION
     Dosage: 10 MILLIGRAM, QD
     Route: 048
     Dates: start: 20200215
  3. FLUTICASONE PROPIONATE. [Concomitant]
     Active Substance: FLUTICASONE PROPIONATE
     Dosage: UNK
  4. GENTAMICIN. [Concomitant]
     Active Substance: GENTAMICIN
     Indication: URINARY TRACT INFECTION
     Dosage: 120 MILLIGRAM
     Route: 042
     Dates: start: 20200413
  5. SALMETEROL/FLUTICASON ORION [Concomitant]
     Dosage: 50MCG/500MCG. BLISTER(S).
     Route: 055
  6. CO-AMOXICLAV                       /01000301/ [Concomitant]
     Active Substance: AMOXICILLIN\CLAVULANATE POTASSIUM
     Indication: CHRONIC OBSTRUCTIVE PULMONARY DISEASE
     Dosage: 500/125MG THREE TIME A DAY
     Route: 048
     Dates: start: 20200214, end: 20200219
  7. SANDO K                            /00209301/ [Concomitant]
     Active Substance: POTASSIUM BICARBONATE\POTASSIUM CHLORIDE
     Dosage: 3 DOSAGE FORM, QD
     Route: 048
     Dates: start: 20200326
  8. PHYTOMENADIONE [Concomitant]
     Active Substance: PHYTONADIONE
     Dosage: 2 MILLIGRAM
     Route: 042
     Dates: start: 20200414
  9. SODIUM HYDROGEN CARBONATE [Concomitant]
     Active Substance: SODIUM BICARBONATE
     Dosage: UNK
     Route: 042
     Dates: start: 20200413
  10. WARFARIN [Suspect]
     Active Substance: WARFARIN
     Dosage: VARIABLE - NEWLY STARTED (LOW WARFARIN REQUIREMENT). SINGLE DOSE. DOSE ADJUSTED ACCORDING TO INR.
     Route: 048
     Dates: start: 20200411
  11. WARFARIN [Suspect]
     Active Substance: WARFARIN
     Dosage: VARIABLE - NEWLY STARTED (LOW WARFARIN REQUIREMENT). SINGLE DOSE. DOSE ADJUSTED ACCORDING TO INR.
     Route: 048
     Dates: start: 20200403
  12. MAGNESIUM SULPHATE                 /07507001/ [Concomitant]
     Active Substance: MAGNESIUM SULFATE
     Indication: HYPOMAGNESAEMIA
     Dosage: 20 MILLIMOLE
     Route: 042
     Dates: start: 20200216
  13. ENOXAPARIN [Concomitant]
     Active Substance: ENOXAPARIN
     Dosage: 40 MILLIGRAM
     Route: 058
     Dates: start: 20200215
  14. DIGOXIN. [Concomitant]
     Active Substance: DIGOXIN
     Dosage: 500 MICROGRAM
     Route: 048
     Dates: start: 20200216
  15. MORPHINE SULFATE. [Concomitant]
     Active Substance: MORPHINE SULFATE
     Dosage: 2.5 MILLIGRAM
     Route: 030
     Dates: start: 20200216
  16. CALCIUM GLUCONATE. [Concomitant]
     Active Substance: CALCIUM GLUCONATE
     Dosage: 10 MILLILITER
     Route: 042
     Dates: start: 20200413
  17. INSULIN [Concomitant]
     Active Substance: INSULIN NOS
     Dosage: 100 INTERNATIONAL UNIT
     Dates: start: 20200412
  18. LOPERAMIDE [Concomitant]
     Active Substance: LOPERAMIDE
     Dosage: MAXIMUM DOSE OF 8 TABLETS
     Route: 048
     Dates: start: 20200306, end: 20200308
  19. PREDNISOLONE. [Concomitant]
     Active Substance: PREDNISOLONE
     Dosage: IN THE MORNING. AFTER BREAKFAST
     Route: 048
     Dates: start: 20200214
  20. IPRATROPIUM [Concomitant]
     Active Substance: IPRATROPIUM
     Dosage: 500 MICROGRAM
     Dates: start: 20200215
  21. HYDROXOCOBALAMIN [Concomitant]
     Active Substance: HYDROXOCOBALAMIN
     Dosage: 1 MILLIGRAM
     Route: 030
     Dates: start: 20200308
  22. CO-AMOXICLAV                       /01000301/ [Concomitant]
     Active Substance: AMOXICILLIN\CLAVULANATE POTASSIUM
     Indication: PNEUMONIA
     Dosage: 1.2 GRAM
     Route: 042
     Dates: start: 20200323
  23. SALBUTAMOL [Concomitant]
     Active Substance: ALBUTEROL
     Dosage: EVERY 4-6 HOURLY WHEN REQUIRED
     Route: 055
  24. WARFARIN [Suspect]
     Active Substance: WARFARIN
     Dosage: VARIABLE - NEWLY STARTED (LOW WARFARIN REQUIREMENT). SINGLE DOSE. DOSE ADJUSTED ACCORDING TO INR.
     Route: 048
     Dates: start: 20200331
  25. APIXABAN [Concomitant]
     Active Substance: APIXABAN
     Indication: ATRIAL FIBRILLATION
     Dosage: STOPPED AND SWITCHED TO WARFARIN
     Route: 048
  26. MOMETASONE [Concomitant]
     Active Substance: MOMETASONE
     Dosage: 50MCG/DOSE. BOTH NOSTRILS. IN THE MORNING
     Route: 045
  27. AMLODIPINE [Concomitant]
     Active Substance: AMLODIPINE BESYLATE
     Indication: HYPOTENSION
     Dosage: IN THE MORNING
     Route: 048
  28. DIGOXIN. [Concomitant]
     Active Substance: DIGOXIN
     Dosage: 250 MICROGRAM
     Route: 048
     Dates: start: 20200216
  29. HYDROCORTISONE SODIUM SUCCINATE [Concomitant]
     Active Substance: HYDROCORTISONE SODIUM SUCCINATE
     Dosage: UNK
     Route: 042
     Dates: start: 20200216
  30. HEPARIN [Concomitant]
     Active Substance: HEPARIN SODIUM
     Dosage: UNK
     Route: 042
     Dates: start: 20200229
  31. SODIUM LACTATE. [Concomitant]
     Active Substance: SODIUM LACTATE
     Dosage: UNK
     Dates: start: 20200302

REACTIONS (10)
  - Blood albumin decreased [Unknown]
  - Pneumonia [Unknown]
  - COVID-19 [Unknown]
  - Diarrhoea [Unknown]
  - International normalised ratio increased [Recovered/Resolved]
  - Pyrexia [Unknown]
  - Renal failure [Unknown]
  - Malaise [Unknown]
  - Cough [Unknown]
  - Pulmonary hilar enlargement [Unknown]

NARRATIVE: CASE EVENT DATE: 20200322
